FAERS Safety Report 8795302 (Version 7)
Quarter: 2014Q2

REPORT INFORMATION
  Report Type: Spontaneous
  Country: US (occurrence: US)
  Receive Date: 20120917
  Receipt Date: 20140515
  Transmission Date: 20141212
  Serious: Yes (Hospitalization, Other)
  Sender: FDA-Public Use
  Company Number: US-009507513-1209USA002311

PATIENT
  Sex: Female
  Weight: 74.83 kg

DRUGS (3)
  1. FOSAMAX [Suspect]
     Indication: OSTEOPOROSIS
     Dosage: UNK
     Route: 048
     Dates: start: 199510
  2. FOSAMAX [Suspect]
     Dosage: 70 MG, QW
     Route: 048
  3. ALENDRONATE SODIUM [Suspect]
     Indication: OSTEOPOROSIS
     Dosage: 70 MG, QW
     Route: 048
     Dates: start: 20080428, end: 201010

REACTIONS (11)
  - Femur fracture [Recovered/Resolved]
  - Open reduction of fracture [Unknown]
  - Surgery [Unknown]
  - Fall [Unknown]
  - Cardiac flutter [Unknown]
  - Cardiac murmur [Unknown]
  - Low turnover osteopathy [Unknown]
  - Dental implantation [Unknown]
  - Hyperlipidaemia [Unknown]
  - Hysterectomy [Unknown]
  - Limb asymmetry [Not Recovered/Not Resolved]
